FAERS Safety Report 5487878-8 (Version None)
Quarter: 2007Q4

REPORT INFORMATION
  Report Type: 
  Country: None (occurrence: None)
  Receive Date: 20071017
  Receipt Date: 20071005
  Transmission Date: 20080405
  Serious: Yes (Other)
  Sender: FDA-Public Use
  Company Number: DK-BRISTOL-MYERS SQUIBB COMPANY-13940077

PATIENT
  Age: 64 Year
  Sex: Male

DRUGS (4)
  1. CETUXIMAB [Suspect]
     Indication: COLORECTAL CANCER METASTATIC
     Dosage: CETUXIMAB 5MG/ML(INTRAVENOUS INFUSION). MOST RECENT INFUSION OF THE DRUG WAS 18-MAY-2007
     Route: 042
     Dates: start: 20070518, end: 20070518
  2. FLUOROURACIL [Suspect]
     Indication: COLORECTAL CANCER METASTATIC
     Dosage: MOST RECENT INFUSION OF THE DRUG WAS 18-MAY-2007
     Dates: start: 20070518, end: 20070518
  3. FOLINIC ACID [Suspect]
     Indication: COLORECTAL CANCER METASTATIC
     Dosage: MOST RECENT INFUSION OF THE DRUG WAS 18-MAY-2007
     Dates: start: 20070518, end: 20070518
  4. OXALIPLATIN [Suspect]
     Indication: COLORECTAL CANCER METASTATIC
     Dosage: MOST RECENT INFUSION OF THE DRUG WAS 18-MAY-2007
     Dates: start: 20070518, end: 20070518

REACTIONS (1)
  - PNEUMONIA [None]
